FAERS Safety Report 8181613-0 (Version None)
Quarter: 2012Q1

REPORT INFORMATION
  Report Type: 
  Country: None (occurrence: None)
  Receive Date: 20120302
  Receipt Date: 20120223
  Transmission Date: 20120608
  Serious: Yes (Other)
  Sender: FDA-Public Use
  Company Number: AU-JNJFOC-20110100319

PATIENT
  Sex: Male

DRUGS (4)
  1. STELARA [Suspect]
     Indication: PSORIASIS
     Route: 058
     Dates: start: 20101229
  2. STELARA [Suspect]
     Route: 058
     Dates: start: 20110201
  3. OXYCODONE HCL [Concomitant]
     Dates: start: 20101228
  4. STELARA [Suspect]
     Route: 058
     Dates: start: 20110428

REACTIONS (9)
  - PSORIATIC ARTHROPATHY [None]
  - DIZZINESS [None]
  - DEPRESSION [None]
  - URINE OUTPUT INCREASED [None]
  - EUPHORIC MOOD [None]
  - FEELING ABNORMAL [None]
  - PSORIASIS [None]
  - URINARY RETENTION [None]
  - SUICIDAL IDEATION [None]
